FAERS Safety Report 8476027-X (Version None)
Quarter: 2012Q2

REPORT INFORMATION
  Report Type: 
  Country: None (occurrence: None)
  Receive Date: 20120622
  Receipt Date: 20120608
  Transmission Date: 20120825
  Serious: Yes (Death)
  Sender: FDA-Public Use
  Company Number: 2012000142

PATIENT
  Age: 51 Year
  Sex: Female

DRUGS (1)
  1. PERINDOPRIL ERBUMINE [Suspect]
     Indication: HYPERTENSION
     Dosage: 8 MG, QD, ORAL
     Route: 048
     Dates: start: 20120501

REACTIONS (3)
  - SUDDEN DEATH [None]
  - FALL [None]
  - BLOOD PRESSURE INCREASED [None]
